FAERS Safety Report 4274738-3 (Version None)
Quarter: 2004Q1

REPORT INFORMATION
  Report Type: 
  Country: None (occurrence: None)
  Receive Date: 20040116
  Receipt Date: 20040107
  Transmission Date: 20041129
  Serious: Yes (Death, Hospitalization, Other)
  Sender: FDA-Public Use
  Company Number: ERD2003A00076

PATIENT
  Age: 65 Year
  Sex: Male

DRUGS (12)
  1. PIOGLITAZONE HCL [Suspect]
     Indication: DIABETES MELLITUS NON-INSULIN-DEPENDENT
     Dosage: 45 MG ORAL
     Route: 048
     Dates: start: 20020426, end: 20030316
  2. HUMAN MIXTARD (HUMAN MIXTARD) [Concomitant]
  3. METFORMIN HCL [Concomitant]
  4. MESALAZINE (MESALAZINE) [Concomitant]
  5. DILTIAZEM [Concomitant]
  6. RAMIPRIL [Concomitant]
  7. ATENOLOL [Concomitant]
  8. SIMVASTATIN [Concomitant]
  9. FUROSEMIDE [Concomitant]
  10. WARFARIN SODIUM [Concomitant]
  11. CLOPIDOGREL BISULFATE [Concomitant]
  12. NITROGLYCERIN [Concomitant]

REACTIONS (12)
  - ACUTE CORONARY SYNDROME [None]
  - ANGINA UNSTABLE [None]
  - BRAIN OEDEMA [None]
  - CEREBRAL HAEMATOMA [None]
  - CEREBRAL HAEMORRHAGE [None]
  - DEPRESSED LEVEL OF CONSCIOUSNESS [None]
  - HYDROCEPHALUS [None]
  - HYPERTENSION [None]
  - INTRACRANIAL PRESSURE INCREASED [None]
  - INTRAVENTRICULAR HAEMORRHAGE [None]
  - MYOCARDIAL INFARCTION [None]
  - VENTRICULAR DYSFUNCTION [None]
